FAERS Safety Report 7685690-2 (Version None)
Quarter: 2011Q3

REPORT INFORMATION
  Report Type: 
  Country: None (occurrence: None)
  Receive Date: 20110815
  Receipt Date: 20110815
  Transmission Date: 20111222
  Serious: No
  Sender: FDA-Public Use
  Company Number: None

PATIENT
  Age: 49 Year
  Sex: Female
  Weight: 48.9885 kg

DRUGS (1)
  1. PATANASE [Suspect]
     Indication: MULTIPLE ALLERGIES
     Dosage: 2 SPRAYS EACH NOSTRIL 1X DAY

REACTIONS (1)
  - DIZZINESS [None]
